FAERS Safety Report 4675958-6 (Version None)
Quarter: 2005Q2

REPORT INFORMATION
  Report Type: 
  Country: None (occurrence: None)
  Receive Date: 20050527
  Receipt Date: 20050419
  Transmission Date: 20051028
  Serious: No
  Sender: FDA-Public Use
  Company Number: US-GLAXOSMITHKLINE-A0554835A

PATIENT
  Age: 83 Year
  Sex: Female

DRUGS (3)
  1. WELLBUTRIN XL [Suspect]
     Dosage: 150MG PER DAY
     Route: 048
     Dates: start: 20040401
  2. LIPITOR [Suspect]
  3. VITAMINS [Concomitant]

REACTIONS (2)
  - DIZZINESS [None]
  - DRUG INTERACTION [None]
